FAERS Safety Report 25775942 (Version 1)
Quarter: 2025Q3

REPORT INFORMATION
  Report Type: Spontaneous
  Country: CA (occurrence: CA)
  Receive Date: 20250909
  Receipt Date: 20250909
  Transmission Date: 20251021
  Serious: Yes (Other)
  Sender: TEVA
  Company Number: CA-TEVA-VS-3370861

PATIENT
  Age: 22 Year
  Sex: Male

DRUGS (4)
  1. SPIRONOLACTONE [Suspect]
     Active Substance: SPIRONOLACTONE
     Indication: Product used for unknown indication
     Route: 065
  2. ENTRESTO [Suspect]
     Active Substance: SACUBITRIL\VALSARTAN
     Indication: Product used for unknown indication
     Route: 065
  3. METOPROLOL [Suspect]
     Active Substance: METOPROLOL
     Indication: Product used for unknown indication
     Route: 065
  4. JARDIANCE [Suspect]
     Active Substance: EMPAGLIFLOZIN
     Indication: Product used for unknown indication
     Route: 065

REACTIONS (9)
  - Cardiomyopathy [Unknown]
  - Cardiac failure [Unknown]
  - Myocardial fibrosis [Unknown]
  - Supraventricular extrasystoles [Unknown]
  - Ejection fraction decreased [Unknown]
  - Dizziness [Unknown]
  - Ventricular extrasystoles [Unknown]
  - Palpitations [Unknown]
  - N-terminal prohormone brain natriuretic peptide increased [Unknown]
